FAERS Safety Report 8937930 (Version 1)
Quarter: 2012Q4

REPORT INFORMATION
  Report Type: Spontaneous
  Country: US (occurrence: None)
  Receive Date: 20121128
  Receipt Date: 20121128
  Transmission Date: 20130627
  Serious: No
  Sender: FDA-Public Use
  Company Number: None

PATIENT
  Sex: Female
  Weight: 100 kg

DRUGS (2)
  1. SYLATRON [Suspect]
     Indication: MELANOMA
     Dosage: 600 mcg 1/wk subcut
     Route: 058
     Dates: start: 20121126
  2. SYLATRON [Suspect]

REACTIONS (2)
  - Product label issue [None]
  - Circumstance or information capable of leading to medication error [None]
